FAERS Safety Report 23711232 (Version 1)
Quarter: 2024Q2

REPORT INFORMATION
  Report Type: Report from Study
  Country: CA (occurrence: CA)
  Receive Date: 20240405
  Receipt Date: 20240405
  Transmission Date: 20240715
  Serious: Yes (Other)
  Sender: FDA-Public Use
  Company Number: CA-JAMP PHARMA CORPORATION-2022-JAM-CA-00708

PATIENT
  Age: 54 Year
  Sex: Female

DRUGS (2)
  1. SIMLANDI [Suspect]
     Active Substance: ADALIMUMAB-RYVK
     Indication: Crohn^s disease
     Dosage: 40MG, EVERY WEEK
     Route: 058
     Dates: start: 20220803
  2. SIMLANDI [Suspect]
     Active Substance: ADALIMUMAB-RYVK
     Indication: Crohn^s disease
     Dosage: 40MG X2, WEEKLY
     Route: 058

REACTIONS (4)
  - Crohn^s disease [Unknown]
  - Underdose [Unknown]
  - Product prescribing issue [Unknown]
  - Off label use [Not Recovered/Not Resolved]
